FAERS Safety Report 23267532 (Version 1)
Quarter: 2023Q4

REPORT INFORMATION
  Report Type: Spontaneous
  Country: GB (occurrence: None)
  Receive Date: 20231205
  Receipt Date: 20231205
  Transmission Date: 20240109
  Serious: Yes (Disabling)
  Sender: FDA-Public Use
  Company Number: None

PATIENT
  Age: 68 Year
  Sex: Male
  Weight: 76 kg

DRUGS (11)
  1. CIPROFLOXACIN [Suspect]
     Active Substance: CIPROFLOXACIN
     Indication: Testicular pain
     Dates: start: 20210407, end: 20210419
  2. GABAPENTIN [Concomitant]
     Active Substance: GABAPENTIN
  3. TAMSULOSIN [Concomitant]
     Active Substance: TAMSULOSIN
  4. ASPIRIN [Concomitant]
     Active Substance: ASPIRIN
  5. ISOSORBIDE MONONITRATE [Concomitant]
     Active Substance: ISOSORBIDE MONONITRATE
  6. BISOPROLOL [Concomitant]
     Active Substance: BISOPROLOL\BISOPROLOL FUMARATE
  7. RANOLAZINE [Concomitant]
     Active Substance: RANOLAZINE
  8. NITROGLYCERIN [Concomitant]
     Active Substance: NITROGLYCERIN
  9. Magnesium Oil [Concomitant]
  10. ACETAMINOPHEN [Concomitant]
     Active Substance: ACETAMINOPHEN
  11. OFLOXACIN [Suspect]
     Active Substance: OFLOXACIN

REACTIONS (12)
  - Dizziness [None]
  - Diarrhoea [None]
  - Inadequate analgesia [None]
  - Pain in extremity [None]
  - Gait disturbance [None]
  - Peripheral swelling [None]
  - Muscle spasms [None]
  - Arthralgia [None]
  - Tendon pain [None]
  - Arthralgia [None]
  - Arthralgia [None]
  - Dysstasia [None]

NARRATIVE: CASE EVENT DATE: 20210407
